FAERS Safety Report 20884498 (Version 1)
Quarter: 2022Q2

REPORT INFORMATION
  Report Type: Spontaneous
  Country: US (occurrence: US)
  Receive Date: 20220527
  Receipt Date: 20220527
  Transmission Date: 20220720
  Serious: Yes (Hospitalization, Other)
  Sender: FDA-Public Use
  Company Number: US-BRISTOL-MYERS SQUIBB COMPANY-2022-043850

PATIENT
  Age: 72 Year
  Sex: Female
  Weight: 103.87 kg

DRUGS (15)
  1. ELIQUIS [Suspect]
     Active Substance: APIXABAN
     Indication: Embolism venous
     Dosage: DOSE : 5 MG;     FREQ : TWICE A DAY
     Route: 065
     Dates: start: 20220503
  2. ESZOPICLONE [Concomitant]
     Active Substance: ESZOPICLONE
     Indication: Product used for unknown indication
     Route: 065
  3. ATOMOXETINE [Concomitant]
     Active Substance: ATOMOXETINE
     Indication: Gastrooesophageal reflux disease
     Dosage: 40 MG, SAME DRUG FOR 80 MG, (80 MG IS THE  FIRST ONE OF EACH  AND 5 HOURS LATER I TAKE 40 MG),
  4. ISOSORBIDE DINITRATE [Concomitant]
     Active Substance: ISOSORBIDE DINITRATE
     Indication: Product used for unknown indication
     Dosage: 30 MG ONE IN THE MORNING AND ONE IN THE EVENING BY MOUTH TWICE DAILY
     Route: 065
  5. CYCLOBENZAPRINE [Concomitant]
     Active Substance: CYCLOBENZAPRINE
     Indication: Product used for unknown indication
     Route: 065
  6. TYLENOL [Concomitant]
     Active Substance: ACETAMINOPHEN
     Indication: Pain
     Route: 065
  7. CARVEDILOL [Concomitant]
     Active Substance: CARVEDILOL
     Indication: Product used for unknown indication
     Dosage: NIGHT MEDICATION
     Route: 065
  8. ALLOPURINOL [Concomitant]
     Active Substance: ALLOPURINOL
     Indication: Product used for unknown indication
     Dosage: 2 TABLETS
     Route: 048
  9. LEVOTHYROXINE [Concomitant]
     Active Substance: LEVOTHYROXINE
     Indication: Thyroid disorder
     Route: 065
  10. LYRICA [Concomitant]
     Active Substance: PREGABALIN
     Indication: Hypersensitivity
     Dosage: IT S OVER THE COUNTER
     Route: 065
  11. ATORVASTATIN [Concomitant]
     Active Substance: ATORVASTATIN
     Indication: Product used for unknown indication
     Dosage: ONE TABLET
     Route: 065
  12. VITAMIN D2 [Concomitant]
     Active Substance: ERGOCALCIFEROL
     Indication: Muscle relaxant therapy
     Dosage: 50000 UNITS BY MOUTH ONCE A WEEK
     Route: 065
  13. PREGABALIN [Concomitant]
     Active Substance: PREGABALIN
     Indication: Pain
     Route: 065
  14. LOSARTAN [Concomitant]
     Active Substance: LOSARTAN
     Indication: Blood pressure measurement
     Route: 065
  15. FUROSEMIDE [Concomitant]
     Active Substance: FUROSEMIDE
     Indication: Product used for unknown indication
     Dosage: 1 TABLET
     Route: 048

REACTIONS (3)
  - Peripheral swelling [Unknown]
  - Weight decreased [Unknown]
  - Contusion [Unknown]

NARRATIVE: CASE EVENT DATE: 20220503
